FAERS Safety Report 8854934 (Version 1)
Quarter: 2012Q4

REPORT INFORMATION
  Report Type: 
  Country: US (occurrence: US)
  Receive Date: 20121023
  Receipt Date: 20121023
  Transmission Date: 20130627
  Serious: No
  Sender: FDA-Public Use
  Company Number: US-009507513-1210USA007454

PATIENT

DRUGS (1)
  1. EMEND FOR INJECTION [Suspect]
     Dosage: UNK
     Route: 042

REACTIONS (3)
  - Heart rate increased [Unknown]
  - Hypertension [Unknown]
  - Blood pressure increased [Unknown]
